FAERS Safety Report 10036158 (Version 1)
Quarter: 2014Q1

REPORT INFORMATION
  Report Type: Spontaneous
  Country: US (occurrence: None)
  Receive Date: 20140306
  Receipt Date: 20140306
  Transmission Date: 20141002
  Serious: Yes (Other)
  Sender: FDA-Public Use
  Company Number: 163-21880-13120837

PATIENT
  Age: 75 Year
  Sex: Male
  Weight: 88 kg

DRUGS (9)
  1. REVLIMID (LENALIDOMIDE) (10 MILLIGRAM, CAPSULES) [Suspect]
     Indication: PLASMA CELL MYELOMA
     Dosage: 10 MG, 1 IN 1 D, PO
     Route: 048
     Dates: start: 20130208
  2. ZOMETA (ZOLEDRONIC ACID) (UNKNOWN) [Concomitant]
  3. ACYCLOVIR (ACICLOVIR) (TABLETS) [Concomitant]
  4. VELCADE (BORTEZOMIB) (UNKNOWN) [Concomitant]
  5. LYRICA (PREGABALIN) (CAPSULES) [Concomitant]
  6. BENADRYL (DIPHENHYDRAMINE) (LIQUID) [Concomitant]
  7. AMLODIPINE BESYLATE (AMLODIPINE BESILATE) (TABLETS) [Concomitant]
  8. LOSARTAN POTISSIUM (LOSARTAN POTASSIUM) (TABLETS) [Concomitant]
  9. DEXAMETHASONE (DEXAMETHEASONE) (TABLETS) [Concomitant]

REACTIONS (1)
  - Blood cholesterol increased [None]
